FAERS Safety Report 9557404 (Version 1)
Quarter: 2013Q3

REPORT INFORMATION
  Report Type: Spontaneous
  Country: US (occurrence: None)
  Receive Date: 20130726
  Receipt Date: 20130726
  Transmission Date: 20140515
  Serious: Yes (Hospitalization)
  Sender: FDA-Public Use
  Company Number: UTC-018095

PATIENT
  Age: 80 Year
  Sex: Female
  Weight: 60.1 kg

DRUGS (5)
  1. TYVASO [Suspect]
     Indication: COR PULMONALE CHRONIC
     Dosage: 4 IN 1 D
     Route: 055
     Dates: start: 20100309, end: 20120608
  2. DIURETICS [Concomitant]
  3. ADCIRCA [Concomitant]
  4. DILTIAZEM [Concomitant]
  5. ASPIRIN [Concomitant]

REACTIONS (8)
  - Syncope [None]
  - Dizziness [None]
  - Dizziness [None]
  - Chest pain [None]
  - Asthenia [None]
  - Fall [None]
  - Malaise [None]
  - Syncope [None]
